FAERS Safety Report 8789356 (Version 1)
Quarter: 2012Q4

REPORT INFORMATION
  Report Type: Spontaneous
  Country: US (occurrence: None)
  Receive Date: 20120910
  Receipt Date: 20120910
  Transmission Date: 20130627
  Serious: Yes (Disabling)
  Sender: FDA-Public Use
  Company Number: None

PATIENT
  Age: 37 Year
  Sex: Female
  Weight: 49.9 kg

DRUGS (1)
  1. CIPROFLOXACIN HCL [Suspect]
     Indication: UTI
     Dosage: 250mg 2x/day po
     Route: 048
     Dates: start: 20120611, end: 20120615

REACTIONS (21)
  - Tendon pain [None]
  - Muscular weakness [None]
  - Malaise [None]
  - Nausea [None]
  - Diarrhoea [None]
  - Night sweats [None]
  - Heart rate abnormal [None]
  - Hypopnoea [None]
  - Sleep apnoea syndrome [None]
  - Mucosal dryness [None]
  - Anxiety [None]
  - Depression [None]
  - Confusional state [None]
  - Disturbance in attention [None]
  - Arthralgia [None]
  - Hypoaesthesia [None]
  - Paraesthesia [None]
  - Oral candidiasis [None]
  - Dyspnoea [None]
  - Myalgia [None]
  - Joint crepitation [None]
